FAERS Safety Report 8712040 (Version 2)
Quarter: 2012Q4

REPORT INFORMATION
  Report Type: 
  Country: GB (occurrence: GB)
  Receive Date: 20120807
  Receipt Date: 20120925
  Transmission Date: 20130627
  Serious: Yes (Disabling)
  Sender: FDA-Public Use
  Company Number: GB-TEVA-351957ISR

PATIENT
  Age: 56 Year
  Sex: Female
  Weight: 70.76 kg

DRUGS (3)
  1. INDAPAMIDE [Suspect]
     Dates: start: 20120416
  2. CLOTRIMAZOLE [Concomitant]
     Dates: start: 20120706, end: 20120709
  3. METRONIDAZOLE [Concomitant]
     Dates: start: 20120713, end: 20120720

REACTIONS (1)
  - Hearing impaired [Recovered/Resolved]
